FAERS Safety Report 17193248 (Version 2)
Quarter: 2023Q1

REPORT INFORMATION
  Report Type: Spontaneous
  Country: PT (occurrence: PT)
  Receive Date: 20191223
  Receipt Date: 20230104
  Transmission Date: 20230417
  Serious: Yes (Other)
  Sender: FDA-Public Use
  Company Number: PT-BEH-2019110146

PATIENT
  Age: 87 Year
  Sex: Female

DRUGS (1)
  1. HUMAN IMMUNOGLOBULIN G [Suspect]
     Active Substance: HUMAN IMMUNOGLOBULIN G
     Indication: Guillain-Barre syndrome
     Dosage: 0.4 GRAM PER KILOGRAM, QD
     Route: 042

REACTIONS (4)
  - Coombs positive haemolytic anaemia [Unknown]
  - Coombs direct test positive [Unknown]
  - Haemolytic anaemia [Unknown]
  - Intentional product use issue [Unknown]
